FAERS Safety Report 22156564 (Version 2)
Quarter: 2023Q2

REPORT INFORMATION
  Report Type: Spontaneous
  Country: DE (occurrence: DE)
  Receive Date: 20230330
  Receipt Date: 20230530
  Transmission Date: 20230722
  Serious: Yes (Other)
  Sender: FDA-Public Use
  Company Number: DE-MYLANLABS-2023M1033169

PATIENT
  Age: 67 Year
  Sex: Female
  Weight: 95 kg

DRUGS (6)
  1. CERTOPARIN SODIUM [Suspect]
     Active Substance: CERTOPARIN SODIUM
     Indication: Product used for unknown indication
     Dosage: UNK
     Route: 065
  2. CERTOPARIN SODIUM [Suspect]
     Active Substance: CERTOPARIN SODIUM
     Dosage: UNK
     Route: 065
  3. TORSEMIDE [Suspect]
     Active Substance: TORSEMIDE
     Indication: Product used for unknown indication
     Dosage: 5 MILLIGRAM, QD
     Route: 048
  4. LAPROST [Concomitant]
     Dosage: 0.05 MILLIGRAM, QD (0.05 MG/ML)
     Route: 047
  5. LEVOTHYROXINE [Concomitant]
     Active Substance: LEVOTHYROXINE
     Dosage: 0.1 MILLIGRAM, QD (100)
     Route: 048
  6. BRINZOLAMIDE [Concomitant]
     Active Substance: BRINZOLAMIDE
     Dosage: 10 MILLIGRAM, BID (10 MG/ML)
     Route: 047

REACTIONS (3)
  - Pulmonary embolism [Unknown]
  - Dyspnoea [Unknown]
  - Chest pain [Unknown]

NARRATIVE: CASE EVENT DATE: 20230224
